FAERS Safety Report 12106211 (Version 1)
Quarter: 2016Q1

REPORT INFORMATION
  Report Type: Spontaneous
  Country: CO (occurrence: CO)
  Receive Date: 20160223
  Receipt Date: 20160223
  Transmission Date: 20160526
  Serious: Yes (Hospitalization)
  Sender: FDA-Public Use
  Company Number: CO-SHENZHEN TECHDOW PHARMACEUTICAL CO. LTD-CO-2016TEC0000009

PATIENT
  Age: 2 Year
  Sex: Female

DRUGS (5)
  1. PRENATAL MULTIVITAMIN + DHA [Concomitant]
     Indication: PRODUCT USED FOR UNKNOWN INDICATION
     Dosage: UNK, QD
  2. ACETAMINOPHEN. [Concomitant]
     Active Substance: ACETAMINOPHEN
     Indication: PRODUCT USED FOR UNKNOWN INDICATION
     Dosage: UNK, QD
  3. FERROUS                            /00023501/ [Concomitant]
     Indication: MINERAL SUPPLEMENTATION
     Dosage: UNK, QD
  4. NSAIDS [Concomitant]
     Active Substance: UNSPECIFIED INGREDIENT
     Indication: PRODUCT USED FOR UNKNOWN INDICATION
     Dosage: UNK, ONE DAY A MONTH
  5. HEPARIN SODIUM INJECTION USP, PRESERVATIVE FREE [Suspect]
     Active Substance: HEPARIN SODIUM
     Indication: PRODUCT USED FOR UNKNOWN INDICATION
     Dosage: UNK, BID
     Route: 064

REACTIONS (5)
  - Arthritis bacterial [Unknown]
  - Jaundice neonatal [Unknown]
  - Dyspnoea [Unknown]
  - Acute lymphocytic leukaemia [Unknown]
  - Exposure during pregnancy [Unknown]
